FAERS Safety Report 7391108 (Version 4)
Quarter: 2013Q1

REPORT INFORMATION
  Report Type: Spontaneous
  Country: US (occurrence: US)
  Receive Date: 20100518
  Receipt Date: 20130301
  Transmission Date: 20140127
  Serious: No
  Sender: FDA-Public Use
  Company Number: US-BIOGENIDEC-2010BI015763

PATIENT
  Age: 35 Year
  Sex: Female
  Weight: 49 kg

DRUGS (2)
  1. TYSABRI [Suspect]
     Indication: MULTIPLE SCLEROSIS
     Route: 042
     Dates: start: 20071219
  2. STEROID THERAPY (NOS) [Concomitant]
     Indication: MULTIPLE SCLEROSIS

REACTIONS (24)
  - Skin reaction [Not Recovered/Not Resolved]
  - White blood cell count increased [Not Recovered/Not Resolved]
  - Rash [Recovered/Resolved]
  - Decreased immune responsiveness [Not Recovered/Not Resolved]
  - Major depression [Recovered/Resolved]
  - Alopecia [Not Recovered/Not Resolved]
  - Folliculitis [Recovered/Resolved]
  - Infectious mononucleosis [Recovered/Resolved]
  - Skin disorder [Not Recovered/Not Resolved]
  - Depressed mood [Not Recovered/Not Resolved]
  - Tooth extraction [Recovered/Resolved]
  - Gastric disorder [Recovered/Resolved]
  - Hypoaesthesia [Not Recovered/Not Resolved]
  - Insomnia [Recovered/Resolved]
  - Back pain [Not Recovered/Not Resolved]
  - Fatigue [Not Recovered/Not Resolved]
  - Osteomyelitis [Not Recovered/Not Resolved]
  - Multiple sclerosis relapse [Not Recovered/Not Resolved]
  - Lymphadenopathy [Not Recovered/Not Resolved]
  - Dental necrosis [Not Recovered/Not Resolved]
  - Irritability [Recovered/Resolved]
  - General symptom [Recovered/Resolved]
  - Gingival abscess [Not Recovered/Not Resolved]
  - Abscess jaw [Not Recovered/Not Resolved]
